FAERS Safety Report 17423970 (Version 2)
Quarter: 2020Q2

REPORT INFORMATION
  Report Type: Report from Study
  Country: US (occurrence: US)
  Receive Date: 20200217
  Receipt Date: 20200402
  Transmission Date: 20200713
  Serious: No
  Sender: FDA-Public Use
  Company Number: NVSC2020US041404

PATIENT
  Age: 79 Year
  Sex: Female

DRUGS (2)
  1. BEOVU [Suspect]
     Active Substance: BROLUCIZUMAB-DBLL
     Indication: NEOVASCULAR AGE-RELATED MACULAR DEGENERATION
     Dosage: 6 MG ONCE/SINGLE
     Route: 047
     Dates: start: 20190129
  2. BEOVU [Suspect]
     Active Substance: BROLUCIZUMAB-DBLL
     Dosage: 6 MG ONCE/SINGLE
     Route: 047
     Dates: start: 20200129

REACTIONS (3)
  - Eye irritation [Unknown]
  - Eyelid irritation [Unknown]
  - Dark circles under eyes [Unknown]

NARRATIVE: CASE EVENT DATE: 20200129
